FAERS Safety Report 4289189-5 (Version None)
Quarter: 2004Q1

REPORT INFORMATION
  Report Type: 
  Country: None (occurrence: None)
  Receive Date: 20040209
  Receipt Date: 20040209
  Transmission Date: 20041129
  Serious: Yes (Hospitalization)
  Sender: FDA-Public Use
  Company Number: None

PATIENT
  Sex: Female
  Weight: 68.0396 kg

DRUGS (2)
  1. CELEXA [Suspect]
     Indication: CHOREA
     Dosage: 1/2 TAB Q AM ORAL
     Route: 048
     Dates: start: 20030901, end: 20040118
  2. PROVIGIL [Suspect]
     Indication: BIPOLAR II DISORDER
     Dosage: 2 Q AM ORAL
     Route: 048
     Dates: start: 20031101, end: 20040118

REACTIONS (1)
  - CHOREA [None]
